FAERS Safety Report 8097322-2 (Version None)
Quarter: 2012Q1

REPORT INFORMATION
  Report Type: 
  Country: None (occurrence: None)
  Receive Date: 20120128
  Receipt Date: 20110630
  Transmission Date: 20120608
  Serious: Yes (Life-Threatening, Other)
  Sender: FDA-Public Use
  Company Number: US-ABBOTT-11P-163-0835437-00

PATIENT
  Sex: Female

DRUGS (1)
  1. HUMIRA [Suspect]
     Indication: RHEUMATOID ARTHRITIS
     Dates: start: 20010624, end: 20090415

REACTIONS (19)
  - IMMUNOGLOBULINS INCREASED [None]
  - IMPAIRED WORK ABILITY [None]
  - PROTEIN TOTAL INCREASED [None]
  - ACTIVITIES OF DAILY LIVING IMPAIRED [None]
  - VOMITING [None]
  - INJURY [None]
  - NAUSEA [None]
  - GAIT DISTURBANCE [None]
  - DRY EYE [None]
  - TINNITUS [None]
  - WALDENSTROM'S MACROGLOBULINAEMIA [None]
  - SKIN CANCER [None]
  - RHEUMATOID ARTHRITIS [None]
  - MOBILITY DECREASED [None]
  - ARTHRALGIA [None]
  - FATIGUE [None]
  - PAIN [None]
  - UNEVALUABLE EVENT [None]
  - GLOBULINS INCREASED [None]
